FAERS Safety Report 12528710 (Version 2)
Quarter: 2016Q3

REPORT INFORMATION
  Report Type: Spontaneous
  Country: US (occurrence: US)
  Receive Date: 20160705
  Receipt Date: 20160819
  Transmission Date: 20161109
  Serious: Yes (Other)
  Sender: FDA-Public Use
  Company Number: US-SAOL THERAPEUTICS-2016SAO00034

PATIENT
  Age: 55 Year
  Sex: Male
  Weight: 55.78 kg

DRUGS (27)
  1. LIORESAL [Suspect]
     Active Substance: BACLOFEN
     Indication: MULTIPLE SCLEROSIS
     Dosage: UNK
     Route: 037
     Dates: start: 20040820, end: 20151103
  2. LIORESAL [Suspect]
     Active Substance: BACLOFEN
     Dosage: UNK
  3. NEURONTIN [Suspect]
     Active Substance: GABAPENTIN
  4. GLUCOTROL [Suspect]
     Active Substance: GLIPIZIDE
  5. LIORESAL [Suspect]
     Active Substance: BACLOFEN
     Indication: QUADRIPLEGIA
     Dosage: 104.41 ?G, \DAY
     Route: 037
     Dates: start: 20151103, end: 20151128
  6. ALBUTEROL. [Suspect]
     Active Substance: ALBUTEROL
     Dosage: UNK
  7. SENOKOT [Suspect]
     Active Substance: SENNOSIDES
  8. CLOTRIMAZOLE. [Suspect]
     Active Substance: CLOTRIMAZOLE
  9. BOTOX [Suspect]
     Active Substance: ONABOTULINUMTOXINA
  10. PHENERGAN [Suspect]
     Active Substance: PROMETHAZINE HYDROCHLORIDE
  11. ADDERALL XR [Suspect]
     Active Substance: AMPHETAMINE ASPARTATE\AMPHETAMINE SULFATE\DEXTROAMPHETAMINE SACCHARATE\DEXTROAMPHETAMINE SULFATE
  12. METFORMIN [Suspect]
     Active Substance: METFORMIN HYDROCHLORIDE
  13. HUMALOG [Suspect]
     Active Substance: INSULIN LISPRO
  14. FISH OIL [Suspect]
     Active Substance: FISH OIL
  15. AMBIEN [Suspect]
     Active Substance: ZOLPIDEM TARTRATE
  16. VITAMIN B12 [Suspect]
     Active Substance: CYANOCOBALAMIN
  17. NORVASC [Suspect]
     Active Substance: AMLODIPINE BESYLATE
  18. ASPIRIN. [Suspect]
     Active Substance: ASPIRIN
  19. KENALOG [Suspect]
     Active Substance: TRIAMCINOLONE ACETONIDE
  20. TECFIDERA [Suspect]
     Active Substance: DIMETHYL FUMARATE
  21. HYDRODIURIL [Suspect]
     Active Substance: HYDROCHLOROTHIAZIDE
  22. VITAMIN D [Suspect]
     Active Substance: CHOLECALCIFEROL
  23. LIORESAL [Suspect]
     Active Substance: BACLOFEN
     Dosage: 50 ?G, \DAY
     Route: 037
     Dates: start: 20151215
  24. PRAVACHOL [Suspect]
     Active Substance: PRAVASTATIN SODIUM
  25. VIAGRA [Suspect]
     Active Substance: SILDENAFIL CITRATE
  26. LYRICA [Suspect]
     Active Substance: PREGABALIN
  27. FLUOXETINE [Suspect]
     Active Substance: FLUOXETINE HYDROCHLORIDE

REACTIONS (5)
  - Myalgia [Recovered/Resolved]
  - Device failure [Recovered/Resolved]
  - Drug withdrawal syndrome [Recovered/Resolved]
  - Headache [Recovered/Resolved]
  - Urinary retention [Recovered/Resolved]

NARRATIVE: CASE EVENT DATE: 20151127
